FAERS Safety Report 19424855 (Version 1)
Quarter: 2021Q2

REPORT INFORMATION
  Report Type: Spontaneous
  Country: US (occurrence: US)
  Receive Date: 20210617
  Receipt Date: 20210617
  Transmission Date: 20210717
  Serious: No
  Sender: FDA-Public Use
  Company Number: US-ROCHE-2744362

PATIENT
  Sex: Female

DRUGS (1)
  1. ACTEMRA [Suspect]
     Active Substance: TOCILIZUMAB
     Indication: RHEUMATOID ARTHRITIS
     Dosage: 20ML SDV
     Route: 042

REACTIONS (5)
  - Nausea [Unknown]
  - Drug ineffective [Unknown]
  - Headache [Unknown]
  - Rash [Unknown]
  - Swelling [Unknown]
